FAERS Safety Report 4902306-6 (Version None)
Quarter: 2006Q1

REPORT INFORMATION
  Report Type: 
  Country: None (occurrence: None)
  Receive Date: 20060207
  Receipt Date: 20060127
  Transmission Date: 20060701
  Serious: Yes (Hospitalization)
  Sender: FDA-Public Use
  Company Number: PHBS2006CH01472

PATIENT
  Sex: Female

DRUGS (11)
  1. LIORESAL [Suspect]
     Indication: PAIN
     Dosage: 50 MG/DAY
     Route: 065
     Dates: end: 20050901
  2. LIORESAL [Suspect]
     Route: 065
     Dates: start: 20050919, end: 20050922
  3. TOFRANIL [Suspect]
     Dosage: 75 MG/DAY
     Route: 065
     Dates: end: 20050901
  4. TOFRANIL [Suspect]
     Route: 065
     Dates: start: 20050919, end: 20050922
  5. NEURONTIN [Suspect]
     Indication: PAIN
     Dosage: 1300 MG/DAY
     Route: 065
     Dates: end: 20050901
  6. NEURONTIN [Suspect]
     Route: 065
     Dates: start: 20050919, end: 20050922
  7. SEROQUEL [Suspect]
     Indication: SLEEP DISORDER
     Dosage: 25 MG/DAY
     Route: 065
     Dates: start: 20050901, end: 20050901
  8. SEROQUEL [Suspect]
     Route: 065
     Dates: start: 20050919, end: 20050922
  9. TEMESTA [Suspect]
     Route: 065
     Dates: end: 20050901
  10. AULIN [Concomitant]
     Indication: PAIN
     Route: 065
  11. NEXIUM [Concomitant]
     Dosage: 20 MG/DAY
     Route: 065

REACTIONS (3)
  - COMA [None]
  - CONFUSIONAL STATE [None]
  - SOPOR [None]
